FAERS Safety Report 8390121-3 (Version None)
Quarter: 2012Q2

REPORT INFORMATION
  Report Type: 
  Country: None (occurrence: None)
  Receive Date: 20120529
  Receipt Date: 20120524
  Transmission Date: 20120825
  Serious: Yes (Other)
  Sender: FDA-Public Use
  Company Number: US-JNJFOC-20120404439

PATIENT
  Sex: Male

DRUGS (5)
  1. CYMBALTA [Suspect]
     Indication: DEPRESSION
     Route: 048
     Dates: end: 20080101
  2. WELLBUTRIN [Suspect]
     Indication: DEPRESSION
     Route: 048
     Dates: end: 20080101
  3. UNKNOWN MEDICATION [Suspect]
     Indication: PRODUCT USED FOR UNKNOWN INDICATION
     Route: 065
     Dates: end: 20080101
  4. LEXAPRO [Suspect]
     Indication: DEPRESSION
     Route: 065
     Dates: end: 20080101
  5. TRAMADOL HYDROCHLORIDE [Suspect]
     Indication: PAIN
     Route: 065
     Dates: end: 20080101

REACTIONS (5)
  - CEREBROVASCULAR ACCIDENT [None]
  - MUSCLE SPASTICITY [None]
  - PAIN [None]
  - HYPERTENSION [None]
  - MUSCULOSKELETAL STIFFNESS [None]
